FAERS Safety Report 8234371-5 (Version None)
Quarter: 2012Q1

REPORT INFORMATION
  Report Type: 
  Country: None (occurrence: None)
  Receive Date: 20120322
  Receipt Date: 20120309
  Transmission Date: 20120608
  Serious: Yes (Other)
  Sender: FDA-Public Use
  Company Number: FK201200748

PATIENT
  Age: 78 Year
  Sex: Male

DRUGS (11)
  1. FUROSEMIDE (MANUFACTURER UNKNOWN) (FUROSEMIDE) (FUROSEMIDE) [Suspect]
     Indication: POLYURIA
     Dosage: 120 MG, DAILY : 80 MG, BID  : 120 MG, BID
  2. FUROSEMIDE (MANUFACTURER UNKNOWN) (FUROSEMIDE) (FUROSEMIDE) [Suspect]
     Indication: POLYURIA
     Dosage: 120 MG, DAILY : 80 MG, BID  : 120 MG, BID
  3. ACIPIMOX (ACIPIMOX) [Suspect]
     Indication: PRODUCT USED FOR UNKNOWN INDICATION
     Dosage: 250 MG, BID
  4. PERINDOPRIL ERBUMINE [Suspect]
     Indication: PRODUCT USED FOR UNKNOWN INDICATION
     Dosage: 2 MG, DAILY
  5. DIGOXIN [Suspect]
     Indication: PRODUCT USED FOR UNKNOWN INDICATION
     Dosage: 0.125 MG, DAILY
  6. WARFARIN SODIUM [Concomitant]
  7. EZETIMIBE [Suspect]
     Indication: PRODUCT USED FOR UNKNOWN INDICATION
     Dosage: 10 MG, DAILY, ORAL
     Route: 048
  8. AMIODARONE HCL [Suspect]
     Indication: PRODUCT USED FOR UNKNOWN INDICATION
     Dosage: 200 MG, DAILY
  9. BISOPROLOL FUMARATE [Suspect]
     Indication: PRODUCT USED FOR UNKNOWN INDICATION
     Dosage: 7.5 MG, DAILY
  10. LANSOPRAZOLE [Suspect]
     Indication: PRODUCT USED FOR UNKNOWN INDICATION
     Dosage: 30 MG, DAILY
  11. ASPIRIN [Suspect]
     Indication: PRODUCT USED FOR UNKNOWN INDICATION
     Dosage: 75 MG, DAILY

REACTIONS (14)
  - DRUG INEFFECTIVE [None]
  - ATRIAL FIBRILLATION [None]
  - OEDEMA [None]
  - VENTRICULAR TACHYCARDIA [None]
  - DISSOCIATION [None]
  - FATIGUE [None]
  - DYSPNOEA EXERTIONAL [None]
  - CARDIAC MURMUR [None]
  - FEELING ABNORMAL [None]
  - VENOUS PRESSURE JUGULAR INCREASED [None]
  - OEDEMA PERIPHERAL [None]
  - DIZZINESS [None]
  - LEFT VENTRICULAR DYSFUNCTION [None]
  - PARAESTHESIA [None]
